FAERS Safety Report 9121372 (Version 3)
Quarter: 2013Q3

REPORT INFORMATION
  Report Type: Report from Study
  Country: GT (occurrence: GT)
  Receive Date: 20130225
  Receipt Date: 20130821
  Transmission Date: 20140515
  Serious: Yes (Hospitalization)
  Sender: FDA-Public Use
  Company Number: GT-B.I. PHARMACEUTICALS,INC./RIDGEFIELD-2013-RU-00182BP

PATIENT
  Age: 72 Year
  Sex: Male
  Weight: 49 kg

DRUGS (6)
  1. BI 1744+TIOTROPIUM [Suspect]
     Indication: CHRONIC OBSTRUCTIVE PULMONARY DISEASE
     Dates: start: 20120626, end: 20130208
  2. TRIAL PROCEDURE [Suspect]
     Indication: CHRONIC OBSTRUCTIVE PULMONARY DISEASE
  3. CEFTRIAXONE [Suspect]
     Indication: PROPHYLAXIS
     Dosage: 2 G
     Route: 042
     Dates: start: 20130207, end: 20130207
  4. KETOROLAC TROMETHAMINE [Suspect]
     Indication: PROCEDURAL PAIN
     Dosage: 90 MG
     Route: 042
     Dates: start: 20130207, end: 20130208
  5. URETHRAL CATHETERISATION [Concomitant]
     Indication: BENIGN PROSTATIC HYPERPLASIA
     Dates: start: 20121225
  6. LOZARTAN MK [Concomitant]
     Indication: HYPERTENSION
     Dates: start: 20121212

REACTIONS (2)
  - Benign prostatic hyperplasia [Recovered/Resolved]
  - Benign prostatic hyperplasia [Recovered/Resolved]
